FAERS Safety Report 10160822 (Version 1)
Quarter: 2014Q2

REPORT INFORMATION
  Report Type: Spontaneous
  Country: US (occurrence: None)
  Receive Date: 20140507
  Receipt Date: 20140507
  Transmission Date: 20141212
  Serious: No
  Sender: FDA-Public Use
  Company Number: None

PATIENT
  Age: 45 Year
  Sex: Male
  Weight: 79.83 kg

DRUGS (1)
  1. ATRIPLA [Suspect]
     Indication: HIV INFECTION
     Dosage: } 5 YEARS 600/200/300 QDAY
     Route: 048

REACTIONS (4)
  - Anxiety [None]
  - Suicidal ideation [None]
  - Cognitive disorder [None]
  - Paranoia [None]
